FAERS Safety Report 24724685 (Version 2)
Quarter: 2024Q4

REPORT INFORMATION
  Report Type: Spontaneous
  Country: IT (occurrence: IT)
  Receive Date: 20241212
  Receipt Date: 20241222
  Transmission Date: 20250115
  Serious: Yes (Other)
  Sender: ROCHE
  Company Number: None

PATIENT
  Age: 49 Year
  Sex: Female
  Weight: 57 kg

DRUGS (5)
  1. BEVACIZUMAB [Suspect]
     Active Substance: BEVACIZUMAB
     Indication: Adenocarcinoma of colon
     Dosage: 10TH CYCLE
     Route: 042
     Dates: start: 20240523, end: 20240523
  2. CAPECITABINE [Suspect]
     Active Substance: CAPECITABINE
     Indication: Adenocarcinoma of colon
     Dosage: IST CYCLE /2+2 TABLETS OF 500 MG
     Route: 048
     Dates: start: 20240524, end: 20240606
  3. OXALIPLATIN [Suspect]
     Active Substance: OXALIPLATIN
     Indication: Adenocarcinoma of colon
     Dosage: 10TH CYCLE
     Route: 042
     Dates: start: 20240523, end: 20240523
  4. AKYNZEO [Concomitant]
  5. FLUOROURACIL [Concomitant]
     Active Substance: FLUOROURACIL
     Route: 065

REACTIONS (1)
  - Thrombocytopenia [Not Recovered/Not Resolved]

NARRATIVE: CASE EVENT DATE: 20240611
